FAERS Safety Report 21384230 (Version 1)
Quarter: 2022Q3

REPORT INFORMATION
  Report Type: Spontaneous
  Country: FR (occurrence: FR)
  Receive Date: 20220928
  Receipt Date: 20220928
  Transmission Date: 20221027
  Serious: Yes (Hospitalization)
  Sender: FDA-Public Use
  Company Number: None

PATIENT
  Age: 33 Year
  Sex: Male

DRUGS (1)
  1. VECTIBIX [Suspect]
     Active Substance: PANITUMUMAB
     Indication: Adenocarcinoma of colon
     Dosage: UNK
     Route: 040
     Dates: start: 202207, end: 202208

REACTIONS (3)
  - Impetigo [Recovering/Resolving]
  - Pyrexia [Recovering/Resolving]
  - Dermatitis acneiform [Recovering/Resolving]

NARRATIVE: CASE EVENT DATE: 20220701
